FAERS Safety Report 6407324-7 (Version None)
Quarter: 2009Q4

REPORT INFORMATION
  Report Type: 
  Country: None (occurrence: None)
  Receive Date: 20091020
  Receipt Date: 20091014
  Transmission Date: 20100525
  Serious: Yes (Hospitalization)
  Sender: FDA-Public Use
  Company Number: B0595901A

PATIENT
  Sex: Female
  Weight: 66 kg

DRUGS (8)
  1. LAPATINIB [Suspect]
     Indication: BREAST CANCER
     Route: 048
     Dates: start: 20090626
  2. PACLITAXEL [Suspect]
     Indication: BREAST CANCER
     Dosage: 80MGM2 WEEKLY
     Route: 042
     Dates: start: 20090807
  3. TENORMIN [Concomitant]
     Indication: HYPERTENSION
     Dosage: 25MG PER DAY
     Route: 048
     Dates: start: 20050101
  4. ZESTRIL [Concomitant]
     Indication: HYPERTENSION
     Dosage: 20MG PER DAY
     Route: 048
     Dates: start: 20060901, end: 20090922
  5. PRIMPERAN [Concomitant]
     Indication: NAUSEA
     Route: 048
     Dates: start: 20090910
  6. IMODIUM [Concomitant]
     Dosage: 2MG AS REQUIRED
     Route: 048
     Dates: start: 20090701
  7. ZESTRIL [Concomitant]
  8. FERROGRADUMET [Concomitant]
     Dosage: 325MG PER DAY
     Route: 048
     Dates: start: 20091001

REACTIONS (5)
  - DEHYDRATION [None]
  - DIARRHOEA [None]
  - GENERAL PHYSICAL HEALTH DETERIORATION [None]
  - HYPOKALAEMIA [None]
  - HYPONATRAEMIA [None]
